FAERS Safety Report 9452898 (Version 1)
Quarter: 2013Q3

REPORT INFORMATION
  Report Type: Spontaneous
  Country: IT (occurrence: IT)
  Receive Date: 20130812
  Receipt Date: 20130812
  Transmission Date: 20140515
  Serious: Yes (Hospitalization)
  Sender: FDA-Public Use
  Company Number: IT-PFIZER INC-2013231754

PATIENT
  Age: 57 Year
  Sex: Male

DRUGS (5)
  1. PANTORC [Suspect]
     Indication: PROPHYLAXIS AGAINST GASTROINTESTINAL ULCER
     Dosage: 40 MG, 1X/DAY
     Route: 048
     Dates: start: 20130709, end: 20130720
  2. ALIFLUS [Concomitant]
     Dosage: UNK
  3. CORLENTOR [Concomitant]
     Dosage: 10 MG, UNK
     Route: 048
  4. TRIATEC [Concomitant]
     Dosage: 2.5 MG, UNK
     Route: 048
  5. TORVAST [Concomitant]
     Dosage: 20 MG, UNK
     Route: 048

REACTIONS (3)
  - Hypocalcaemia [Recovered/Resolved]
  - Hypokalaemia [Recovered/Resolved]
  - Hypomagnesaemia [Recovered/Resolved]
